FAERS Safety Report 5155614-0 (Version None)
Quarter: 2006Q4

REPORT INFORMATION
  Report Type: 
  Country: None (occurrence: None)
  Receive Date: 20061114
  Receipt Date: 20061104
  Transmission Date: 20070319
  Serious: Yes (Other)
  Sender: FDA-Public Use
  Company Number: 2006119489

PATIENT
  Age: 10 Year
  Sex: Female

DRUGS (3)
  1. ZOLOFT [Suspect]
     Indication: DEPRESSION
     Dosage: (25 MG, UP TO TWO TIMES DAILY)
     Dates: start: 20060701
  2. ZOLOFT [Suspect]
     Indication: OBSESSIVE-COMPULSIVE DISORDER
     Dosage: (25 MG, UP TO TWO TIMES DAILY)
     Dates: start: 20060701
  3. ZOLOFT [Suspect]
     Indication: SUICIDAL IDEATION
     Dosage: (25 MG, UP TO TWO TIMES DAILY)
     Dates: start: 20060701

REACTIONS (7)
  - CONDITION AGGRAVATED [None]
  - DEPRESSION [None]
  - ENURESIS [None]
  - ILL-DEFINED DISORDER [None]
  - OBSESSIVE-COMPULSIVE DISORDER [None]
  - SUICIDAL IDEATION [None]
  - UNDERDOSE [None]
